FAERS Safety Report 19891005 (Version 1)
Quarter: 2021Q3

REPORT INFORMATION
  Report Type: Spontaneous
  Country: FI (occurrence: FI)
  Receive Date: 20210928
  Receipt Date: 20210928
  Transmission Date: 20211014
  Serious: Yes (Other)
  Sender: FDA-Public Use
  Company Number: NVSC2021FI218564

PATIENT
  Age: 28 Year
  Sex: Female

DRUGS (3)
  1. OLANZAPINE. [Suspect]
     Active Substance: OLANZAPINE
     Indication: INITIAL INSOMNIA
     Dosage: 2.5 MG, QD
     Route: 048
     Dates: start: 20210520, end: 20210527
  2. AGOMELATINE [Concomitant]
     Active Substance: AGOMELATINE
     Indication: INSOMNIA
     Dosage: 50 MG, QD
     Route: 048
     Dates: start: 202105
  3. OPAMOX [Concomitant]
     Active Substance: OXAZEPAM
     Indication: PANIC DISORDER
     Dosage: 15 MG, QD
     Route: 048
     Dates: start: 201910

REACTIONS (6)
  - Delusion [Recovered/Resolved]
  - Hallucination, visual [Recovered/Resolved]
  - Hallucination, auditory [Recovered/Resolved]
  - Mental impairment [Recovered/Resolved]
  - Derealisation [Recovered/Resolved]
  - Depressed level of consciousness [Recovered/Resolved]

NARRATIVE: CASE EVENT DATE: 20210521
